FAERS Safety Report 21723038 (Version 1)
Quarter: 2022Q4

REPORT INFORMATION
  Report Type: Report from Study
  Country: CA (occurrence: CA)
  Receive Date: 20221213
  Receipt Date: 20221213
  Transmission Date: 20230113
  Serious: Yes (Other)
  Sender: FDA-Public Use
  Company Number: CA-JNJFOC-20221159423

PATIENT
  Age: 17 Year
  Sex: Male
  Weight: 58.4 kg

DRUGS (2)
  1. REMICADE [Suspect]
     Active Substance: INFLIXIMAB
     Indication: Crohn^s disease
     Dosage: ON 29-SEP-2022 PATIENT RECEIVED REMICADE INFUSION.
     Route: 042
     Dates: start: 20220914
  2. REMICADE [Suspect]
     Active Substance: INFLIXIMAB
     Indication: Anorectal disorder
     Dosage: DOSE ALSO REPORTED AS 12 MG/KG (} 10 MG/KG)
     Route: 042
     Dates: start: 20221124

REACTIONS (3)
  - Crohn^s disease [Not Recovered/Not Resolved]
  - Anorectal disorder [Not Recovered/Not Resolved]
  - Drug level decreased [Unknown]
